FAERS Safety Report 10298373 (Version 1)
Quarter: 2014Q3

REPORT INFORMATION
  Report Type: Spontaneous
  Country: BR (occurrence: BR)
  Receive Date: 20140711
  Receipt Date: 20140711
  Transmission Date: 20150326
  Serious: Yes (Other)
  Sender: FDA-Public Use
  Company Number: BR-PFIZER INC-2014190486

PATIENT
  Sex: Female

DRUGS (2)
  1. LYRICA [Suspect]
     Active Substance: PREGABALIN
     Indication: FIBROMYALGIA
     Dosage: UNK
     Route: 048
     Dates: start: 201406
  2. LYRICA [Suspect]
     Active Substance: PREGABALIN
     Indication: PAIN

REACTIONS (22)
  - Vision blurred [Unknown]
  - Increased appetite [Unknown]
  - Memory impairment [Unknown]
  - Irritability [Unknown]
  - Aphasia [Unknown]
  - Dizziness postural [Unknown]
  - Nuchal rigidity [Unknown]
  - Myalgia [Unknown]
  - Pruritus [Unknown]
  - Visual field defect [Unknown]
  - Generalised oedema [Unknown]
  - Dyspepsia [Unknown]
  - Haemorrhoids [Unknown]
  - Urinary incontinence [Unknown]
  - Constipation [Unknown]
  - Dry mouth [Unknown]
  - Muscle rigidity [Unknown]
  - Reflexes abnormal [Unknown]
  - Flatulence [Unknown]
  - Dry eye [Unknown]
  - Headache [Unknown]
  - Acne [Unknown]

NARRATIVE: CASE EVENT DATE: 2014
